FAERS Safety Report 7051350-4 (Version None)
Quarter: 2010Q4

REPORT INFORMATION
  Report Type: 
  Country: None (occurrence: None)
  Receive Date: 20101018
  Receipt Date: 20101018
  Transmission Date: 20110411
  Serious: Yes (Hospitalization, Disabling, Other)
  Sender: FDA-Public Use
  Company Number: None

PATIENT
  Sex: Female
  Weight: 90.7194 kg

DRUGS (4)
  1. PROLIXIN [Suspect]
     Indication: DEPRESSION
     Dosage: 1 MG 2 @ NIGHT
     Dates: start: 20091201, end: 20100905
  2. NAVANE [Suspect]
     Dates: start: 19940101, end: 20020101
  3. ATIVAN [Suspect]
     Dates: start: 20020101
  4. LEVOTHYROXINE SODIUM [Concomitant]

REACTIONS (5)
  - DIZZINESS [None]
  - FEAR [None]
  - HYPERHIDROSIS [None]
  - PRESYNCOPE [None]
  - TREMOR [None]
